FAERS Safety Report 4833111-7 (Version None)
Quarter: 2005Q4

REPORT INFORMATION
  Report Type: 
  Country: None (occurrence: None)
  Receive Date: 20051121
  Receipt Date: 20051114
  Transmission Date: 20060501
  Serious: Yes (Other)
  Sender: FDA-Public Use
  Company Number: GB-ROCHE-424790

PATIENT
  Age: 46 Year
  Sex: Female

DRUGS (3)
  1. XENICAL [Suspect]
     Indication: OBESITY
     Route: 065
     Dates: start: 20040615
  2. THYROXINE [Interacting]
     Indication: BLOOD THYROID STIMULATING HORMONE DECREASED
     Route: 065
     Dates: start: 20021231
  3. THYROXINE [Interacting]
     Route: 065
     Dates: start: 20040615

REACTIONS (2)
  - DRUG INTERACTION [None]
  - HYPOTHYROIDISM [None]
